FAERS Safety Report 8159159-5 (Version None)
Quarter: 2012Q1

REPORT INFORMATION
  Report Type: 
  Country: None (occurrence: None)
  Receive Date: 20120216
  Receipt Date: 20120209
  Transmission Date: 20120608
  Serious: Yes (Other)
  Sender: FDA-Public Use
  Company Number: A0965357A

PATIENT
  Age: 45 Year
  Sex: Female

DRUGS (2)
  1. METHYLCELLULOSE (FORMULATION UNKNOWN) (METHYLCELLULOSE) [Suspect]
     Indication: CONSTIPATION
     Dosage: 2 CAPLET(S)/PER DAY
     Dates: start: 20120206
  2. CANCER CHEMOTHERAPY [Concomitant]

REACTIONS (2)
  - RECTAL HAEMORRHAGE [None]
  - DRUG INEFFECTIVE [None]
